FAERS Safety Report 9795542 (Version 2)
Quarter: 2014Q1

REPORT INFORMATION
  Report Type: Spontaneous
  Country: GB (occurrence: GB)
  Receive Date: 20140103
  Receipt Date: 20140103
  Transmission Date: 20141002
  Serious: Yes (Other)
  Sender: FDA-Public Use
  Company Number: GB-JNJFOC-20131212863

PATIENT
  Age: 64 Year
  Sex: Male

DRUGS (6)
  1. TRAMADOL HYDROCHLORIDE [Suspect]
     Indication: KNEE ARTHROPLASTY
     Dosage: AS NEEDED
     Route: 048
     Dates: start: 20131115
  2. TRAMADOL HYDROCHLORIDE [Suspect]
     Indication: POSTOPERATIVE ANALGESIA
     Dosage: AS NEEDED
     Route: 048
     Dates: start: 20131115
  3. PARACETAMOL [Concomitant]
     Indication: ANALGESIC THERAPY
     Route: 048
     Dates: start: 20131113
  4. CELECOXIB [Concomitant]
     Indication: ANALGESIC THERAPY
     Route: 048
     Dates: start: 20131113
  5. DABIGATRAN [Concomitant]
     Indication: THROMBOSIS PROPHYLAXIS
     Dosage: 2*7 MG (BOEHRINGER INGELHEIM) INDICATION: POST TKR
     Route: 048
     Dates: start: 20131113
  6. OMEPRAZOLE [Concomitant]
     Indication: GASTROINTESTINAL DISORDER THERAPY
     Dosage: ONCE IN MORNING (OM)
     Route: 048
     Dates: start: 20131113

REACTIONS (2)
  - Urinary retention [Recovered/Resolved]
  - Prostatomegaly [Unknown]
